FAERS Safety Report 8605491-8 (Version None)
Quarter: 2012Q3

REPORT INFORMATION
  Report Type: 
  Country: None (occurrence: None)
  Receive Date: 20120820
  Receipt Date: 20120425
  Transmission Date: 20120928
  Serious: No
  Sender: FDA-Public Use
  Company Number: US-MYLANLABS-2012S1008815

PATIENT
  Age: 64 Year
  Sex: Male
  Weight: 82 kg

DRUGS (2)
  1. INTRAVENOUS DEXTROSE [Concomitant]
     Route: 042
     Dates: start: 20120201, end: 20120201
  2. DIPHENHYDRAMINE HCL [Suspect]
     Indication: PROPHYLACTIC CHEMOTHERAPY
     Route: 042
     Dates: start: 20120201, end: 20120201

REACTIONS (2)
  - INJECTION SITE ERYTHEMA [None]
  - INFUSION SITE PAIN [None]
